FAERS Safety Report 17195739 (Version 2)
Quarter: 2020Q3

REPORT INFORMATION
  Report Type: Spontaneous
  Country: IE (occurrence: IE)
  Receive Date: 20191224
  Receipt Date: 20200715
  Transmission Date: 20201102
  Serious: Yes (Other)
  Sender: FDA-Public Use
  Company Number: IE-TEVA-2019-IE-1158941

PATIENT
  Sex: Male

DRUGS (8)
  1. IVIGLOB EX [Concomitant]
     Active Substance: HUMAN IMMUNOGLOBULIN G
     Indication: PRODUCT USED FOR UNKNOWN INDICATION
     Route: 065
     Dates: start: 20180530
  2. RITUXIMAB. [Suspect]
     Active Substance: RITUXIMAB
     Indication: B-CELL LYMPHOMA
     Dosage: CYCLIC (6 CYCLES)
     Route: 065
     Dates: start: 201804
  3. RITUXIMAB. [Suspect]
     Active Substance: RITUXIMAB
     Dosage: (4 COURSES)
     Route: 065
     Dates: start: 201911
  4. AZATHIOPRINE. [Concomitant]
     Active Substance: AZATHIOPRINE
     Indication: PRODUCT USED FOR UNKNOWN INDICATION
     Dosage: 50 MG, 0.5 DAY
     Route: 065
     Dates: start: 201809
  5. BENDAMUSTINE HYDROCHLORIDE. [Suspect]
     Active Substance: BENDAMUSTINE HYDROCHLORIDE
     Indication: B-CELL LYMPHOMA
     Dosage: CYCLIC (6 CYCLES)
     Route: 042
  6. GAZYVARO [Suspect]
     Active Substance: OBINUTUZUMAB
     Indication: B-CELL LYMPHOMA REFRACTORY
     Dosage: CYCLIC (6 CYCLES)
     Route: 042
  7. GAZYVARO [Suspect]
     Active Substance: OBINUTUZUMAB
     Indication: B-CELL LYMPHOMA RECURRENT
  8. RITUXIMAB. [Suspect]
     Active Substance: RITUXIMAB
     Dosage: CYCLIC (1 CYCLE)
     Route: 065
     Dates: start: 201811

REACTIONS (4)
  - Lymphadenopathy [Unknown]
  - Arteriosclerosis coronary artery [Unknown]
  - Cholelithiasis [Unknown]
  - Diverticulum [Unknown]
